FAERS Safety Report 8924393 (Version 1)
Quarter: 2012Q4

REPORT INFORMATION
  Report Type: 
  Country: US (occurrence: US)
  Receive Date: 20121126
  Receipt Date: 20121126
  Transmission Date: 20130627
  Serious: No
  Sender: FDA-Public Use
  Company Number: US-MYLANLABS-2012S1018490

PATIENT
  Sex: Female

DRUGS (3)
  1. CLONAZEPAM [Suspect]
     Indication: POST-TRAUMATIC STRESS DISORDER
     Route: 048
     Dates: start: 2008
  2. CLONAZEPAM [Suspect]
     Indication: POST-TRAUMATIC STRESS DISORDER
     Route: 048
  3. SYNTHROID [Concomitant]

REACTIONS (3)
  - Oropharyngeal plaque [Not Recovered/Not Resolved]
  - Dry mouth [Not Recovered/Not Resolved]
  - Unevaluable event [Not Recovered/Not Resolved]
